FAERS Safety Report 25010054 (Version 1)
Quarter: 2025Q1

REPORT INFORMATION
  Report Type: Spontaneous
  Country: SK (occurrence: SK)
  Receive Date: 20250225
  Receipt Date: 20250225
  Transmission Date: 20250408
  Serious: Yes (Hospitalization)
  Sender: ALNYLAM PHARMACEUTICALS
  Company Number: SK-ALNYLAM PHARMACEUTICALS, INC.-ALN-2025-001239

PATIENT

DRUGS (2)
  1. ONPATTRO [Suspect]
     Active Substance: PATISIRAN SODIUM
     Indication: Hereditary neuropathic amyloidosis
     Dosage: 300 MICROGRAMS PER KG BODY WEIGHT, Q3W
     Route: 042
     Dates: start: 20220602, end: 20220602
  2. ONPATTRO [Suspect]
     Active Substance: PATISIRAN SODIUM
     Dosage: 300 MICROGRAMS PER KG BODY WEIGHT, Q3W
     Route: 042
     Dates: start: 20250130, end: 20250130

REACTIONS (4)
  - Cardiac failure [Recovered/Resolved with Sequelae]
  - Ventricular hypertrophy [Unknown]
  - Diastolic dysfunction [Unknown]
  - Disease progression [Unknown]

NARRATIVE: CASE EVENT DATE: 20250212
